FAERS Safety Report 6661155-1 (Version None)
Quarter: 2010Q1

REPORT INFORMATION
  Report Type: 
  Country: None (occurrence: None)
  Receive Date: 20100331
  Receipt Date: 20100325
  Transmission Date: 20100710
  Serious: Yes (Death)
  Sender: FDA-Public Use
  Company Number: A0852455A

PATIENT
  Sex: Male

DRUGS (3)
  1. COMBIVIR [Suspect]
     Indication: HIV TEST POSITIVE
     Route: 048
     Dates: start: 20000101
  2. AZT [Suspect]
     Indication: HIV TEST POSITIVE
     Route: 065
     Dates: start: 20000101
  3. UNSPECIFIED MEDICATIONS [Concomitant]

REACTIONS (3)
  - MUSCLE ATROPHY [None]
  - NON-HODGKIN'S LYMPHOMA [None]
  - WEIGHT DECREASED [None]
